FAERS Safety Report 18849119 (Version 3)
Quarter: 2021Q2

REPORT INFORMATION
  Report Type: Report from Study
  Country: None (occurrence: US)
  Receive Date: 20210204
  Receipt Date: 20210504
  Transmission Date: 20210717
  Serious: Yes (Other)
  Sender: FDA-Public Use
  Company Number: US-ABBVIE-21K-163-3756249-00

PATIENT
  Sex: Female

DRUGS (1)
  1. SKYRIZI [Suspect]
     Active Substance: RISANKIZUMAB-RZAA
     Indication: PSORIASIS
     Route: 058

REACTIONS (9)
  - Psoriasis [Unknown]
  - Nausea [Unknown]
  - Syncope [Unknown]
  - Head injury [Unknown]
  - Headache [Unknown]
  - Loss of consciousness [Recovering/Resolving]
  - Concussion [Unknown]
  - Stress [Unknown]
  - Skin exfoliation [Unknown]

NARRATIVE: CASE EVENT DATE: 2021
